FAERS Safety Report 23895603 (Version 7)
Quarter: 2024Q3

REPORT INFORMATION
  Report Type: Spontaneous
  Country: US (occurrence: US)
  Receive Date: 20240524
  Receipt Date: 20240910
  Transmission Date: 20241017
  Serious: Yes (Hospitalization, Other)
  Sender: IPSEN
  Company Number: US-IPSEN Group, Research and Development-2024-08665

PATIENT
  Age: 86 Year
  Sex: Male
  Weight: 78.92 kg

DRUGS (9)
  1. TAZVERIK [Suspect]
     Active Substance: TAZEMETOSTAT HYDROBROMIDE
     Indication: Follicular lymphoma stage II
     Route: 048
  2. ACYCLOVIR [Concomitant]
     Active Substance: ACYCLOVIR
  3. LOW DOSE ASPIRIN [Concomitant]
     Active Substance: ASPIRIN
  4. NORCO [Concomitant]
     Active Substance: ACETAMINOPHEN\HYDROCODONE BITARTRATE
  5. KEPPRA [Concomitant]
     Active Substance: LEVETIRACETAM
  6. TEMAZEPAM [Concomitant]
     Active Substance: TEMAZEPAM
  7. VITAMIN D3 [Concomitant]
     Active Substance: CHOLECALCIFEROL
  8. ATORVASTATIN [Concomitant]
     Active Substance: ATORVASTATIN
  9. DOXEPIN [Concomitant]
     Active Substance: DOXEPIN

REACTIONS (6)
  - Bladder cancer [Recovered/Resolved]
  - Bladder disorder [Unknown]
  - Cystoscopy [Recovering/Resolving]
  - Weight decreased [Recovering/Resolving]
  - Mass [Unknown]
  - Product dose omission issue [Unknown]
